FAERS Safety Report 21260150 (Version 1)
Quarter: 2022Q3

REPORT INFORMATION
  Report Type: Spontaneous
  Country: PL (occurrence: PL)
  Receive Date: 20220826
  Receipt Date: 20220826
  Transmission Date: 20221027
  Serious: Yes (Hospitalization)
  Sender: FDA-Public Use
  Company Number: PL-MYLANLABS-2022M1088950

PATIENT
  Age: 42 Year
  Sex: Male

DRUGS (10)
  1. CISPLATIN [Suspect]
     Active Substance: CISPLATIN
     Indication: Spleen disorder
     Dosage: 100 MILLIGRAM/SQ. METER (ON DAY 2 EVERY 21 DAYS)
     Route: 042
     Dates: start: 2013, end: 201309
  2. CISPLATIN [Suspect]
     Active Substance: CISPLATIN
     Indication: Angiosarcoma
  3. ADRIAMYCIN [Suspect]
     Active Substance: DOXORUBICIN HYDROCHLORIDE
     Indication: Spleen disorder
     Dosage: 60 MILLIGRAM/SQ. METER (ON DAY 2 EVERY 21 DAYS)
     Route: 042
     Dates: start: 2013, end: 201309
  4. ADRIAMYCIN [Suspect]
     Active Substance: DOXORUBICIN HYDROCHLORIDE
     Indication: Angiosarcoma
  5. NAVELBINE [Suspect]
     Active Substance: VINORELBINE TARTRATE
     Indication: Spleen disorder
     Dosage: 30 MILLIGRAM/SQ. METER (ON DAYS 1, 8, AND 15 AND EVERY 28 DAYS)
     Route: 065
     Dates: start: 2013
  6. NAVELBINE [Suspect]
     Active Substance: VINORELBINE TARTRATE
     Indication: Angiosarcoma
  7. IFOSFAMIDE [Suspect]
     Active Substance: IFOSFAMIDE
     Indication: Spleen disorder
     Dosage: 5G/M2 ON DAY 1 EVERY 21 DAYS
     Route: 042
     Dates: start: 2013, end: 201309
  8. IFOSFAMIDE [Suspect]
     Active Substance: IFOSFAMIDE
     Indication: Angiosarcoma
  9. PACLITAXEL [Suspect]
     Active Substance: PACLITAXEL
     Indication: Spleen disorder
     Dosage: 80 MILLIGRAM/SQ. METER (ON DAYS 1, 8, AND 15 AND EVERY 28 DAYS)
     Route: 065
  10. PACLITAXEL [Suspect]
     Active Substance: PACLITAXEL
     Indication: Angiosarcoma

REACTIONS (2)
  - Drug ineffective [Unknown]
  - Disease progression [Unknown]

NARRATIVE: CASE EVENT DATE: 20130201
